FAERS Safety Report 10673651 (Version 1)
Quarter: 2014Q4

REPORT INFORMATION
  Report Type: Report from Study
  Country: NL (occurrence: NL)
  Receive Date: 20141224
  Receipt Date: 20141224
  Transmission Date: 20150529
  Serious: Yes (Other)
  Sender: FDA-Public Use
  Company Number: PHHY2014NL165132

PATIENT
  Age: 74 Year
  Sex: Male

DRUGS (1)
  1. ZOMETA [Suspect]
     Active Substance: ZOLEDRONIC ACID
     Indication: ADENOCARCINOMA
     Dosage: 4 MG PER 100 ML PER 6 WEEKS
     Route: 042

REACTIONS (4)
  - Gait disturbance [Unknown]
  - Adenocarcinoma [Not Recovered/Not Resolved]
  - Malignant neoplasm progression [Not Recovered/Not Resolved]
  - Asthenia [Unknown]

NARRATIVE: CASE EVENT DATE: 201411
